FAERS Safety Report 8031906-2 (Version None)
Quarter: 2012Q1

REPORT INFORMATION
  Report Type: 
  Country: None (occurrence: None)
  Receive Date: 20120109
  Receipt Date: 20111227
  Transmission Date: 20120608
  Serious: Yes (Other)
  Sender: FDA-Public Use
  Company Number: US-WATSON-2011-22453

PATIENT
  Sex: Female
  Weight: 61.224 kg

DRUGS (11)
  1. NORETHINDRON ACETAE/ETHINYL ESTRADIOL [Suspect]
     Indication: CONTRACEPTION
     Dosage: UNK
     Route: 065
  2. XANAX XR [Suspect]
     Indication: BIPOLAR DISORDER
     Dosage: UNK
     Route: 065
  3. GABAPENTIN [Suspect]
     Indication: GENERALISED ANXIETY DISORDER
  4. UNSPECIFIED MEDICATIONS [Suspect]
     Indication: PRODUCT USED FOR UNKNOWN INDICATION
     Route: 065
  5. GABAPENTIN [Suspect]
     Indication: BIPOLAR DISORDER
     Dosage: 3X A DAY
     Route: 065
     Dates: start: 20111128
  6. ADDERALL 5 [Suspect]
     Indication: PRODUCT USED FOR UNKNOWN INDICATION
     Dosage: 40 MG DAILY
     Route: 065
     Dates: end: 20111101
  7. POTASSIUM CITRATE [Suspect]
     Indication: NEPHROLITHIASIS
     Dosage: DAILY
     Route: 065
  8. GABAPENTIN [Suspect]
     Indication: DEPRESSION
  9. GABAPENTIN [Suspect]
     Indication: POST-TRAUMATIC STRESS DISORDER
  10. ABILIFY [Suspect]
     Indication: PRODUCT USED FOR UNKNOWN INDICATION
     Dosage: UNK
     Route: 065
  11. HYDROXOCOBALAMIN [Suspect]
     Indication: MOOD SWINGS
     Dosage: INJECTION WEEKLY
     Route: 065

REACTIONS (18)
  - COORDINATION ABNORMAL [None]
  - DYSKINESIA [None]
  - FEELING ABNORMAL [None]
  - NIGHTMARE [None]
  - ADVERSE EVENT [None]
  - PYREXIA [None]
  - DIZZINESS [None]
  - FATIGUE [None]
  - TREMOR [None]
  - DISORIENTATION [None]
  - VISUAL IMPAIRMENT [None]
  - SOMNOLENCE [None]
  - ATTENTION DEFICIT/HYPERACTIVITY DISORDER [None]
  - ASTHENOPIA [None]
  - MOOD SWINGS [None]
  - SPEECH DISORDER [None]
  - AMNESIA [None]
  - HEADACHE [None]
